FAERS Safety Report 7183882-2 (Version None)
Quarter: 2010Q4

REPORT INFORMATION
  Report Type: 
  Country: None (occurrence: None)
  Receive Date: 20101222
  Receipt Date: 20101213
  Transmission Date: 20110411
  Serious: Yes (Death, Hospitalization)
  Sender: FDA-Public Use
  Company Number: DE-ROCHE-745614

PATIENT
  Sex: Male
  Weight: 74 kg

DRUGS (3)
  1. PEGASYS [Suspect]
     Route: 058
     Dates: start: 20090919, end: 20100716
  2. COPEGUS [Suspect]
     Route: 048
     Dates: start: 20090919, end: 20100716
  3. BISOPROLOL [Concomitant]
     Route: 048
     Dates: end: 20101109

REACTIONS (2)
  - PNEUMONIA PRIMARY ATYPICAL [None]
  - PULMONARY FIBROSIS [None]
